FAERS Safety Report 10832951 (Version 1)
Quarter: 2015Q1

REPORT INFORMATION
  Report Type: Report from Study
  Country: US (occurrence: US)
  Receive Date: 20150219
  Receipt Date: 20150219
  Transmission Date: 20150721
  Serious: No
  Sender: FDA-Public Use
  Company Number: US-ABBVIE-14P-163-1200302-00

PATIENT
  Age: 56 Year
  Sex: Male

DRUGS (3)
  1. CYCLOBENZAPRINE (FLEXERIL) [Concomitant]
     Indication: PRODUCT USED FOR UNKNOWN INDICATION
  2. SELENIUM SULFIDE. [Concomitant]
     Active Substance: SELENIUM SULFIDE
     Indication: TINEA VERSICOLOUR
  3. HUMIRA [Suspect]
     Active Substance: ADALIMUMAB
     Indication: PSORIASIS
     Dates: start: 20131015, end: 20140225

REACTIONS (3)
  - Tongue discolouration [Not Recovered/Not Resolved]
  - Oral fungal infection [Not Recovered/Not Resolved]
  - Tongue geographic [Not Recovered/Not Resolved]

NARRATIVE: CASE EVENT DATE: 201311
